FAERS Safety Report 19009280 (Version 2)
Quarter: 2021Q1

REPORT INFORMATION
  Report Type: Report from Study
  Country: IE (occurrence: IE)
  Receive Date: 20210315
  Receipt Date: 20210331
  Transmission Date: 20210420
  Serious: Yes (Other)
  Sender: FDA-Public Use
  Company Number: IE-MYLANLABS-2021M1014070

PATIENT
  Age: 45 Year
  Sex: Female

DRUGS (2)
  1. HULIO [Suspect]
     Active Substance: ADALIMUMAB-FKJP
     Indication: ARTHRITIS
     Dosage: 40 MILLIGRAM
     Route: 058
     Dates: start: 20210305
  2. HULIO [Suspect]
     Active Substance: ADALIMUMAB-FKJP
     Indication: COLITIS
     Dosage: 160 MILLIGRAM
     Route: 058
     Dates: start: 20210218

REACTIONS (3)
  - Back pain [Recovered/Resolved]
  - Body temperature increased [Recovered/Resolved]
  - Urinary retention [Recovered/Resolved]

NARRATIVE: CASE EVENT DATE: 20210307
